FAERS Safety Report 17565709 (Version 1)
Quarter: 2020Q1

REPORT INFORMATION
  Report Type: Spontaneous
  Country: DE (occurrence: DE)
  Receive Date: 20200320
  Receipt Date: 20200320
  Transmission Date: 20200409
  Serious: Yes (Disabling, Other)
  Sender: FDA-Public Use
  Company Number: DE-PFIZER INC-2020115717

PATIENT
  Sex: Male

DRUGS (1)
  1. CYTOTEC [Suspect]
     Active Substance: MISOPROSTOL
     Indication: LABOUR INDUCTION
     Dosage: 3 DF, UNK
     Route: 064
     Dates: start: 20180218, end: 20180218

REACTIONS (4)
  - Brain injury [Recovered/Resolved with Sequelae]
  - Disability [Unknown]
  - Foetal exposure during pregnancy [Unknown]
  - Cerebrovascular accident [Recovered/Resolved with Sequelae]

NARRATIVE: CASE EVENT DATE: 20180218
